FAERS Safety Report 7694156-5 (Version None)
Quarter: 2011Q3

REPORT INFORMATION
  Report Type: 
  Country: None (occurrence: None)
  Receive Date: 20110819
  Receipt Date: 20110808
  Transmission Date: 20111222
  Serious: Yes (Hospitalization, Other)
  Sender: FDA-Public Use
  Company Number: ES-PFIZER INC-2011060118

PATIENT
  Age: 84 Year
  Sex: Female
  Weight: 52.8 kg

DRUGS (3)
  1. SINTROM [Concomitant]
     Dosage: UNK
  2. AMIODARONE HCL [Suspect]
     Indication: ATRIAL FIBRILLATION
     Dosage: 200 MG, DAILY
  3. DIGOXIN [Concomitant]

REACTIONS (2)
  - THYROIDITIS [None]
  - CARDIAC DISORDER [None]
